FAERS Safety Report 24966985 (Version 6)
Quarter: 2025Q2

REPORT INFORMATION
  Report Type: Spontaneous
  Country: DE (occurrence: DE)
  Receive Date: 20250213
  Receipt Date: 20250625
  Transmission Date: 20250717
  Serious: Yes (Death, Hospitalization, Other)
  Sender: GILEAD
  Company Number: DE-GILEAD-2025-0703865

PATIENT
  Age: 59 Year
  Sex: Female
  Weight: 86 kg

DRUGS (1)
  1. YESCARTA [Suspect]
     Active Substance: AXICABTAGENE CILOLEUCEL
     Indication: Diffuse large B-cell lymphoma stage IV
     Route: 065
     Dates: start: 20250130, end: 20250130

REACTIONS (3)
  - Immune effector cell-associated neurotoxicity syndrome [Fatal]
  - Cytokine release syndrome [Fatal]
  - Influenza [Unknown]

NARRATIVE: CASE EVENT DATE: 20250203
